FAERS Safety Report 20370938 (Version 4)
Quarter: 2022Q2

REPORT INFORMATION
  Report Type: Spontaneous
  Country: AU (occurrence: AU)
  Receive Date: 20220124
  Receipt Date: 20220502
  Transmission Date: 20220721
  Serious: Yes (Other)
  Sender: FDA-Public Use
  Company Number: AU-MYLANLABS-2022M1004378

PATIENT
  Age: 28 Year
  Sex: Female

DRUGS (3)
  1. CLOZARIL [Suspect]
     Active Substance: CLOZAPINE
     Indication: Schizophrenia
     Dosage: 125 MILLIGRAM
     Route: 048
     Dates: start: 20110111
  2. CLOZARIL [Suspect]
     Active Substance: CLOZAPINE
     Dosage: 175 MILLIGRAM
     Route: 048
     Dates: start: 20110111
  3. RITUXIMAB [Suspect]
     Active Substance: RITUXIMAB
     Indication: Product used for unknown indication
     Dosage: UNK

REACTIONS (4)
  - Non-Hodgkin^s lymphoma [Unknown]
  - Neutropenia [Recovered/Resolved]
  - White blood cell count decreased [Recovered/Resolved]
  - COVID-19 [Unknown]

NARRATIVE: CASE EVENT DATE: 20220331
